FAERS Safety Report 11290044 (Version 2)
Quarter: 2015Q4

REPORT INFORMATION
  Report Type: Spontaneous
  Country: US (occurrence: US)
  Receive Date: 20150721
  Receipt Date: 20151205
  Transmission Date: 20160304
  Serious: No
  Sender: FDA-Public Use
  Company Number: US-GLAXOSMITHKLINE-US2015GSK101873

PATIENT
  Age: 47 Year
  Sex: Female
  Weight: 77.98 kg

DRUGS (5)
  1. ADVIL [Suspect]
     Active Substance: IBUPROFEN
     Indication: MIGRAINE
     Dosage: UNK, U
     Route: 065
  2. RELPAX [Suspect]
     Active Substance: ELETRIPTAN HYDROBROMIDE
     Indication: MIGRAINE
     Dosage: 40 MG, UNK
     Dates: start: 2013
  3. SUMATRIPTAN SUCCINATE TABLET [Suspect]
     Active Substance: SUMATRIPTAN SUCCINATE
     Indication: MIGRAINE
     Dosage: 50 MG, PRN
     Route: 065
     Dates: start: 201304, end: 2015
  4. EXCEDRIN [Suspect]
     Active Substance: ACETAMINOPHEN\ASPIRIN\CAFFEINE
     Indication: MIGRAINE
     Dosage: UNK
  5. IMITREX [Suspect]
     Active Substance: SUMATRIPTAN\SUMATRIPTAN SUCCINATE
     Indication: MIGRAINE
     Dosage: UNK, U
     Route: 065
     Dates: start: 2014, end: 2015

REACTIONS (19)
  - Speech disorder [Recovered/Resolved]
  - Impaired driving ability [Unknown]
  - Fear [Unknown]
  - Feeling of despair [Unknown]
  - Frustration [Unknown]
  - Dyspnoea [Unknown]
  - Palpitations [Unknown]
  - Adverse event [Unknown]
  - Heart rate increased [Unknown]
  - Somnolence [Unknown]
  - Nausea [Unknown]
  - Drug intolerance [Unknown]
  - Bed rest [Unknown]
  - Headache [Unknown]
  - Nightmare [Recovering/Resolving]
  - Ill-defined disorder [Unknown]
  - Abdominal discomfort [Unknown]
  - Pain [Recovering/Resolving]
  - Drug ineffective [Unknown]

NARRATIVE: CASE EVENT DATE: 201506
